FAERS Safety Report 6255558-7 (Version None)
Quarter: 2009Q2

REPORT INFORMATION
  Report Type: 
  Country: None (occurrence: None)
  Receive Date: 20090630
  Receipt Date: 20090623
  Transmission Date: 20091009
  Serious: Yes (Hospitalization)
  Sender: FDA-Public Use
  Company Number: 2008SP002008

PATIENT
  Age: 27 Year
  Sex: Male
  Weight: 59 kg

DRUGS (3)
  1. PEG-INTRON [Suspect]
     Indication: HEPATITIS B
     Dosage: 60 MCG;QW;SC 30 MCG;QW;SC,60 MCG QW;SC
     Route: 058
     Dates: start: 20080111, end: 20080125
  2. PEG-INTRON [Suspect]
     Indication: HEPATITIS B
     Dosage: 60 MCG;QW;SC 30 MCG;QW;SC,60 MCG QW;SC
     Route: 058
     Dates: start: 20080205, end: 20080212
  3. PEG-INTRON [Suspect]
     Indication: HEPATITIS B
     Dosage: 60 MCG;QW;SC 30 MCG;QW;SC,60 MCG QW;SC
     Route: 058
     Dates: start: 20080219

REACTIONS (3)
  - APPETITE DISORDER [None]
  - ASTHENIA [None]
  - HEPATITIS [None]
